FAERS Safety Report 19949913 (Version 2)
Quarter: 2021Q4

REPORT INFORMATION
  Report Type: Other
  Country: US (occurrence: US)
  Receive Date: 20211013
  Receipt Date: 20211019
  Transmission Date: 20220303
  Serious: Yes (Other)
  Sender: FDA-Public Use
  Company Number: US-ROCHE-2931917

PATIENT
  Sex: Female

DRUGS (2)
  1. OCREVUS [Suspect]
     Active Substance: OCRELIZUMAB
     Indication: Relapsing multiple sclerosis
     Dosage: NO?DOT: 06-MAR-2020, 18-MAR-2021, 18-SEP-2021, 19-MAR-2020, 18-SEP-2020
     Route: 042
     Dates: start: 20200306
  2. MACROBID [Concomitant]
     Active Substance: NITROFURANTOIN\NITROFURANTOIN MONOHYDRATE

REACTIONS (2)
  - Kidney infection [Not Recovered/Not Resolved]
  - Urinary tract infection [Unknown]
